FAERS Safety Report 8482295-0 (Version None)
Quarter: 2012Q3

REPORT INFORMATION
  Report Type: 
  Country: None (occurrence: None)
  Receive Date: 20120702
  Receipt Date: 20120618
  Transmission Date: 20120928
  Serious: Yes (Disabling, Other)
  Sender: FDA-Public Use
  Company Number: DE-ROCHE-1074561

PATIENT
  Sex: Female
  Weight: 88 kg

DRUGS (2)
  1. ZOMETA [Suspect]
     Indication: PRODUCT USED FOR UNKNOWN INDICATION
     Dates: end: 20090603
  2. HERCEPTIN [Suspect]
     Indication: BREAST CANCER METASTATIC
     Route: 042
     Dates: start: 20050919

REACTIONS (7)
  - MYALGIA [None]
  - SPINAL OSTEOARTHRITIS [None]
  - ARTHRALGIA [None]
  - OSTEONECROSIS [None]
  - HEPATOBILIARY DISEASE [None]
  - FEMUR FRACTURE [None]
  - MUSCULOSKELETAL PAIN [None]
